FAERS Safety Report 10366003 (Version 1)
Quarter: 2014Q3

REPORT INFORMATION
  Report Type: Spontaneous
  Country: US (occurrence: US)
  Receive Date: 20140806
  Receipt Date: 20140806
  Transmission Date: 20150326
  Serious: Yes (Hospitalization)
  Sender: FDA-Public Use
  Company Number: US-GLAXOSMITHKLINE-A1083208A

PATIENT
  Age: 73 Year
  Sex: Female

DRUGS (12)
  1. VITAMIN B [Concomitant]
     Active Substance: VITAMIN B
  2. NASONEX [Concomitant]
     Active Substance: MOMETASONE FUROATE
  3. PAROXETINE [Concomitant]
     Active Substance: PAROXETINE\PAROXETINE HYDROCHLORIDE
  4. LISINOPRIL. [Concomitant]
     Active Substance: LISINOPRIL
  5. TRIAZOLAM. [Concomitant]
     Active Substance: TRIAZOLAM
  6. FLUTICASONE NASAL SPRAY [Concomitant]
     Active Substance: FLUTICASONE\FLUTICASONE PROPIONATE
  7. PROMETHAZINE-CODEINE SYRUP [Concomitant]
  8. VITAMIN D [Concomitant]
     Active Substance: CHOLECALCIFEROL
  9. ALBUTEROL SULFATE NEBULIZER [Concomitant]
  10. ADVAIR HFA [Suspect]
     Active Substance: FLUTICASONE PROPIONATE\SALMETEROL XINAFOATE
     Indication: ASTHMA
     Dosage: 1PUFF TWICE PER DAY
     Route: 055
     Dates: start: 2002, end: 20140713
  11. MONTELUKAST [Concomitant]
     Active Substance: MONTELUKAST SODIUM
  12. FEXOFENADINE [Concomitant]
     Active Substance: FEXOFENADINE\FEXOFENADINE HYDROCHLORIDE

REACTIONS (6)
  - Lung infection [Recovering/Resolving]
  - Skin abrasion [Recovering/Resolving]
  - Haemoptysis [Recovering/Resolving]
  - Bronchospasm [Recovering/Resolving]
  - Sinusitis [Recovering/Resolving]
  - Fall [Recovering/Resolving]

NARRATIVE: CASE EVENT DATE: 20140629
